FAERS Safety Report 5507831-5 (Version None)
Quarter: 2007Q4

REPORT INFORMATION
  Report Type: 
  Country: None (occurrence: None)
  Receive Date: 20071106
  Receipt Date: 20071025
  Transmission Date: 20080405
  Serious: No
  Sender: FDA-Public Use
  Company Number: US-ELI_LILLY_AND_COMPANY-US200707003371

PATIENT
  Age: 55 Year
  Sex: Male
  Weight: 77.097 kg

DRUGS (5)
  1. ALIMTA [Suspect]
     Dosage: UNK, UNK
     Dates: start: 20070201
  2. CARBOPLATIN [Concomitant]
     Indication: MESOTHELIOMA
     Dates: start: 20070201
  3. FOLIC ACID [Concomitant]
     Indication: VITAMIN SUPPLEMENTATION
  4. VITAMIN B-12 [Concomitant]
     Indication: VITAMIN SUPPLEMENTATION
  5. ZOFRAN [Concomitant]
     Indication: ANTIEMETIC SUPPORTIVE CARE

REACTIONS (2)
  - CONSTIPATION [None]
  - NAUSEA [None]
